FAERS Safety Report 4592944-5 (Version None)
Quarter: 2005Q1

REPORT INFORMATION
  Report Type: 
  Country: None (occurrence: None)
  Receive Date: 20050228
  Receipt Date: 20050217
  Transmission Date: 20050727
  Serious: Yes (Life-Threatening, Hospitalization)
  Sender: FDA-Public Use
  Company Number: FR-GLAXOSMITHKLINE-B0372070A

PATIENT
  Age: 34 Year
  Sex: Female
  Weight: 55 kg

DRUGS (3)
  1. ZOPHREN [Suspect]
     Dosage: 2MG TWICE PER DAY
     Route: 042
     Dates: start: 20050127, end: 20050201
  2. RIVOTRIL [Suspect]
     Dosage: 1UNIT TWICE PER DAY
     Route: 042
     Dates: start: 20050126, end: 20050131
  3. OMEPRAZOLE [Concomitant]
     Route: 065
     Dates: start: 20050131

REACTIONS (4)
  - BRADYCARDIA [None]
  - DRUG INTERACTION [None]
  - DRUG TOLERANCE DECREASED [None]
  - HEADACHE [None]
